FAERS Safety Report 11423647 (Version 13)
Quarter: 2016Q1

REPORT INFORMATION
  Report Type: Spontaneous
  Country: US (occurrence: US)
  Receive Date: 20150827
  Receipt Date: 20160301
  Transmission Date: 20160525
  Serious: No
  Sender: FDA-Public Use
  Company Number: US-ACTELION PHARMACEUTICALS US, INC.-A-US2015-121952

PATIENT
  Age: 67 Year
  Sex: Female

DRUGS (9)
  1. VENTAVIS [Suspect]
     Active Substance: ILOPROST
     Indication: PULMONARY ARTERIAL HYPERTENSION
     Dosage: 5 MCG, 2-3X DAILY
     Route: 055
  2. VENTAVIS [Suspect]
     Active Substance: ILOPROST
     Dosage: 5 MCG, 6-8 X/DAY
     Route: 055
  3. ELIQUIS [Concomitant]
     Active Substance: APIXABAN
  4. OPSUMIT [Suspect]
     Active Substance: MACITENTAN
     Indication: PULMONARY ARTERIAL HYPERTENSION
     Dosage: 10 MG, QD
     Route: 048
     Dates: start: 201502
  5. WARFARIN [Concomitant]
     Active Substance: WARFARIN
  6. VENTAVIS [Suspect]
     Active Substance: ILOPROST
     Dosage: 5 MCG, 6-9X DAILY
     Route: 055
     Dates: end: 201509
  7. VENTAVIS [Suspect]
     Active Substance: ILOPROST
     Dosage: 5 MCG, 6-9X DAILY
     Route: 055
     Dates: start: 20140716
  8. VENTAVIS [Suspect]
     Active Substance: ILOPROST
     Dosage: 5 MCG, 4X DAILY
     Route: 055
     Dates: end: 201511
  9. OPSUMIT [Suspect]
     Active Substance: MACITENTAN
     Dosage: 10 MG, QD
     Route: 048

REACTIONS (32)
  - Pain in extremity [Unknown]
  - Nerve root compression [Unknown]
  - Dry throat [Unknown]
  - Oropharyngeal pain [Recovered/Resolved]
  - Glossodynia [Unknown]
  - Choking sensation [Unknown]
  - Dry mouth [Unknown]
  - Throat irritation [Unknown]
  - Condition aggravated [Unknown]
  - Headache [Unknown]
  - Heart rate increased [Unknown]
  - Insomnia [Unknown]
  - Pharyngeal oedema [Unknown]
  - Abdominal discomfort [Unknown]
  - Aphonia [Unknown]
  - Dyspnoea exertional [Unknown]
  - Cervical radiculopathy [Unknown]
  - Pleuritic pain [Unknown]
  - Fluid retention [Unknown]
  - Rotator cuff syndrome [Unknown]
  - Nasal discomfort [Unknown]
  - Incorrect drug administration duration [Unknown]
  - Dysphonia [Unknown]
  - Hypotension [Unknown]
  - Fatigue [Unknown]
  - Musculoskeletal pain [Unknown]
  - Myalgia [Unknown]
  - Nervousness [Unknown]
  - Fall [Unknown]
  - Laryngitis [Unknown]
  - Vocal cord disorder [Unknown]
  - Chest pain [Unknown]

NARRATIVE: CASE EVENT DATE: 20150725
